FAERS Safety Report 25698483 (Version 2)
Quarter: 2025Q3

REPORT INFORMATION
  Report Type: Spontaneous
  Country: US (occurrence: US)
  Receive Date: 20250819
  Receipt Date: 20250910
  Transmission Date: 20251021
  Serious: Yes (Life-Threatening, Hospitalization)
  Sender: TEVA
  Company Number: US-TEVA-VS-3362934

PATIENT
  Age: 80 Year
  Sex: Male

DRUGS (1)
  1. AMIODARONE [Suspect]
     Active Substance: AMIODARONE
     Indication: Ventricular tachycardia
     Route: 065

REACTIONS (6)
  - Decompensated hypothyroidism [Recovering/Resolving]
  - Septic shock [Recovering/Resolving]
  - Cardiogenic shock [Recovering/Resolving]
  - Atrioventricular block first degree [Recovering/Resolving]
  - Cardiomegaly [Recovering/Resolving]
  - Hypothyroidism [Recovering/Resolving]
